FAERS Safety Report 7592020-3 (Version None)
Quarter: 2011Q3

REPORT INFORMATION
  Report Type: 
  Country: None (occurrence: None)
  Receive Date: 20110705
  Receipt Date: 20110705
  Transmission Date: 20111222
  Serious: Yes (Hospitalization)
  Sender: FDA-Public Use
  Company Number: None

PATIENT
  Sex: Female
  Weight: 70.5 kg

DRUGS (1)
  1. HERCEPTIN [Suspect]
     Dosage: 422 MG
     Dates: end: 20101216

REACTIONS (6)
  - PRODUCTIVE COUGH [None]
  - BODY TEMPERATURE INCREASED [None]
  - HEART RATE INCREASED [None]
  - BLOOD PRESSURE DIASTOLIC DECREASED [None]
  - OROPHARYNGEAL PAIN [None]
  - COUGH [None]
